FAERS Safety Report 21196115 (Version 1)
Quarter: 2022Q3

REPORT INFORMATION
  Report Type: Spontaneous
  Country: US (occurrence: None)
  Receive Date: 20220810
  Receipt Date: 20220810
  Transmission Date: 20221027
  Serious: No
  Sender: FDA-Public Use
  Company Number: None

PATIENT
  Age: 33 Year
  Sex: Male
  Weight: 144 kg

DRUGS (3)
  1. PAXLOVID [Suspect]
     Active Substance: NIRMATRELVIR\RITONAVIR
     Indication: COVID-19
     Dosage: OTHER QUANTITY : 2 TABLET(S);?FREQUENCY : TWICE A DAY;?
     Route: 048
     Dates: start: 20220807, end: 20220810
  2. TYLENOL [Concomitant]
  3. MOTRIN [Concomitant]
     Active Substance: IBUPROFEN

REACTIONS (4)
  - Pruritus [None]
  - Erythema [None]
  - Scratch [None]
  - Therapy interrupted [None]

NARRATIVE: CASE EVENT DATE: 20220810
